FAERS Safety Report 9733421 (Version 3)
Quarter: 2013Q4

REPORT INFORMATION
  Report Type: Spontaneous
  Country: AU (occurrence: AU)
  Receive Date: 20131205
  Receipt Date: 20131231
  Transmission Date: 20140711
  Serious: Yes (Other)
  Sender: FDA-Public Use
  Company Number: AU-PFIZER INC-2013346658

PATIENT
  Age: 62 Year
  Sex: Male
  Weight: 80 kg

DRUGS (6)
  1. LYRICA [Suspect]
     Indication: PARTIAL SEIZURES
     Dosage: 150 MG, TWICE DAILY
     Route: 048
     Dates: start: 20040210, end: 2011
  2. LYRICA [Suspect]
     Dosage: 150 MG, DAILY
     Route: 048
     Dates: start: 2011
  3. TEGRETOL [Concomitant]
     Indication: PARTIAL SEIZURES
     Dosage: 200 MG, 2X/DAY
     Route: 048
  4. DIFORMIN [Concomitant]
     Dosage: UNK
  5. DIAMICRON [Concomitant]
     Dosage: UNK
  6. LIPITOR [Concomitant]
     Indication: HYPERCHOLESTEROLAEMIA
     Dosage: 30 MG, 1X/DAY
     Route: 048

REACTIONS (7)
  - Staring [Unknown]
  - Hallucination, gustatory [Unknown]
  - Memory impairment [Unknown]
  - Mutism [Unknown]
  - Aphasia [Unknown]
  - Irritability [Recovered/Resolved]
  - Aggression [Recovered/Resolved]
